FAERS Safety Report 15362401 (Version 1)
Quarter: 2018Q3

REPORT INFORMATION
  Report Type: Spontaneous
  Country: BE (occurrence: BE)
  Receive Date: 20180907
  Receipt Date: 20180907
  Transmission Date: 20181010
  Serious: Yes (Hospitalization, Other)
  Sender: FDA-Public Use
  Company Number: BE-PFIZER INC-2018357106

PATIENT
  Age: 58 Year
  Weight: 79 kg

DRUGS (20)
  1. PRIMPERAN [Concomitant]
     Active Substance: METOCLOPRAMIDE HYDROCHLORIDE
     Indication: PROPHYLAXIS AGAINST GASTROINTESTINAL ULCER
     Dosage: UNK
     Dates: start: 201802
  2. SUNITINIB MALATE. [Suspect]
     Active Substance: SUNITINIB MALATE
     Indication: METASTATIC RENAL CELL CARCINOMA
     Dosage: 37.5 MG, QD
     Route: 065
     Dates: start: 201704, end: 201801
  3. XGEVA [Suspect]
     Active Substance: DENOSUMAB
     Indication: METASTASES TO BONE
     Dosage: UNK
     Route: 065
     Dates: start: 201703, end: 201807
  4. DUOVENT [Concomitant]
     Active Substance: FENOTEROL HYDROBROMIDE
     Dosage: UNK
  5. PANTOMED [DEXPANTHENOL] [Concomitant]
     Dosage: UNK
     Dates: start: 201608
  6. BICLAR [Concomitant]
     Active Substance: CLARITHROMYCIN
     Indication: RESPIRATORY TRACT INFECTION
     Dosage: UNK
     Dates: start: 201710, end: 201710
  7. STEOVIT FORTE [Concomitant]
     Dosage: UNK
     Dates: start: 201703
  8. MOVICOL [Concomitant]
     Active Substance: POLYETHYLENE GLYCOL 3350\POTASSIUM CHLORIDE\SODIUM BICARBONATE\SODIUM CHLORIDE
     Indication: PROPHYLAXIS
     Dosage: UNK
     Dates: start: 201802
  9. LIPIKAR [ALOIN;BEESWAX;GLYCEROL;LEVOMENOL;PALMITIC ACID] [Concomitant]
     Indication: DRY SKIN
     Dosage: UNK
     Dates: start: 201705, end: 201705
  10. AMLODIPINE [Concomitant]
     Active Substance: AMLODIPINE BESYLATE
     Indication: HYPERTENSION
     Dosage: UNK
     Dates: start: 201608, end: 201704
  11. INUVAIR [Concomitant]
     Active Substance: BECLOMETHASONE DIPROPIONATE\FORMOTEROL FUMARATE
     Dosage: UNK
     Dates: start: 201502
  12. ZOVIRAX [Concomitant]
     Active Substance: ACYCLOVIR
     Dosage: UNK
  13. LEDERTREXATE SODIUM [Concomitant]
     Indication: RHEUMATOID ARTHRITIS
     Dosage: UNK
     Dates: start: 201305, end: 201801
  14. LITICAN [ALIZAPRIDE] [Concomitant]
     Dosage: UNK
     Dates: start: 201802
  15. ZYLORIC [Concomitant]
     Active Substance: ALLOPURINOL
     Dosage: UNK
  16. PREDNISOLONE. [Concomitant]
     Active Substance: PREDNISOLONE
     Dosage: UNK
     Dates: start: 201703, end: 201807
  17. FOLIUMZUUR [Concomitant]
     Active Substance: FOLIC ACID
     Indication: RHEUMATOID ARTHRITIS
     Dosage: UNK
     Dates: start: 201305, end: 201801
  18. TRADONAL [Concomitant]
     Active Substance: TRAMADOL HYDROCHLORIDE
     Dosage: UNK
     Dates: start: 201807
  19. PARACETAMOL [Concomitant]
     Active Substance: ACETAMINOPHEN
     Indication: PAIN
     Dosage: UNK
     Dates: start: 201807
  20. MOTILIUM [DOMPERIDONE] [Concomitant]
     Dosage: UNK
     Dates: start: 201802

REACTIONS (3)
  - Tooth abscess [Unknown]
  - Osteonecrosis of jaw [Recovering/Resolving]
  - Dry skin [Unknown]

NARRATIVE: CASE EVENT DATE: 201705
